FAERS Safety Report 16211084 (Version 2)
Quarter: 2019Q2

REPORT INFORMATION
  Report Type: Spontaneous
  Country: ES (occurrence: ES)
  Receive Date: 20190418
  Receipt Date: 20190419
  Transmission Date: 20190711
  Serious: Yes (Other)
  Sender: FDA-Public Use
  Company Number: ES-AMGEN-ESPSP2019058377

PATIENT
  Sex: Female

DRUGS (1)
  1. PROLIA [Suspect]
     Active Substance: DENOSUMAB
     Indication: BONE DISORDER
     Dosage: UNK
     Route: 065

REACTIONS (5)
  - Dental care [Unknown]
  - Bone density decreased [Unknown]
  - Cataract [Unknown]
  - Memory impairment [Unknown]
  - Spinal fracture [Unknown]
